FAERS Safety Report 5415103-2 (Version None)
Quarter: 2007Q3

REPORT INFORMATION
  Report Type: 
  Country: None (occurrence: None)
  Receive Date: 20070815
  Receipt Date: 20070604
  Transmission Date: 20080115
  Serious: No
  Sender: FDA-Public Use
  Company Number: A0654475A

PATIENT
  Age: 62 Year
  Sex: Male

DRUGS (2)
  1. COREG CR [Suspect]
     Indication: PROPHYLAXIS
     Dosage: 10MG PER DAY
     Route: 048
     Dates: start: 20070602
  2. AVANDIA [Suspect]
     Route: 048
     Dates: end: 20070401

REACTIONS (3)
  - NAUSEA [None]
  - OEDEMA [None]
  - SWELLING [None]
